FAERS Safety Report 7412872-7 (Version None)
Quarter: 2011Q2

REPORT INFORMATION
  Report Type: 
  Country: None (occurrence: None)
  Receive Date: 20110413
  Receipt Date: 20110406
  Transmission Date: 20111010
  Serious: Yes (Other)
  Sender: FDA-Public Use
  Company Number: B0712609A

PATIENT
  Sex: Female

DRUGS (1)
  1. REVOLADE [Suspect]
     Indication: IDIOPATHIC THROMBOCYTOPENIC PURPURA
     Route: 065
     Dates: start: 20110321, end: 20110328

REACTIONS (3)
  - PLATELET COUNT INCREASED [None]
  - MYOCARDIAL INFARCTION [None]
  - CHEST PAIN [None]
